FAERS Safety Report 7657442-0 (Version None)
Quarter: 2011Q3

REPORT INFORMATION
  Report Type: 
  Country: None (occurrence: None)
  Receive Date: 20110804
  Receipt Date: 20101007
  Transmission Date: 20111222
  Serious: Yes (Death)
  Sender: FDA-Public Use
  Company Number: PE-ASTRAZENECA-2011SE45134

PATIENT
  Age: 81 Year
  Sex: Female

DRUGS (1)
  1. SEROQUEL [Suspect]
     Indication: DEMENTIA ALZHEIMER'S TYPE
     Route: 048
     Dates: start: 20060216

REACTIONS (1)
  - DEATH [None]
